FAERS Safety Report 5200762-X (Version None)
Quarter: 2006Q4

REPORT INFORMATION
  Report Type: 
  Country: None (occurrence: None)
  Receive Date: 20061016
  Receipt Date: 20060710
  Transmission Date: 20070319
  Serious: No
  Sender: FDA-Public Use
  Company Number: 2006SP002647

PATIENT
  Age: 54 Year
  Sex: Male
  Weight: 70.3075 kg

DRUGS (1)
  1. LUNESTA [Suspect]
     Indication: INSOMNIA
     Dosage: 0.75 MG; ORAL
     Route: 048
     Dates: start: 20060201, end: 20060301

REACTIONS (1)
  - LIBIDO DECREASED [None]
